FAERS Safety Report 9759520 (Version 4)
Quarter: 2016Q3

REPORT INFORMATION
  Report Type: Report from Study
  Country: DE (occurrence: CH)
  Receive Date: 20131216
  Receipt Date: 20160812
  Transmission Date: 20161109
  Serious: Yes (Hospitalization)
  Sender: FDA-Public Use
  Company Number: CH-009507513-1312CHE004965

PATIENT

DRUGS (3)
  1. DELEOBUVIR [Suspect]
     Active Substance: DELEOBUVIR
     Indication: HEPATITIS C
     Dosage: 600 MG, BID
  2. RIBAVIRIN. [Suspect]
     Active Substance: RIBAVIRIN
     Indication: HEPATITIS C
     Dosage: WEIGHT BASED FOR 16 WEEKS.
     Route: 048
  3. FALDAPREVIR [Suspect]
     Active Substance: FALDAPREVIR
     Indication: HEPATITIS C
     Dosage: 120 MG, QD

REACTIONS (1)
  - Dehydration [Unknown]
